FAERS Safety Report 6738779-6 (Version None)
Quarter: 2010Q2

REPORT INFORMATION
  Report Type: 
  Country: None (occurrence: None)
  Receive Date: 20100524
  Receipt Date: 20100511
  Transmission Date: 20101027
  Serious: Yes (Hospitalization)
  Sender: FDA-Public Use
  Company Number: US-WATSON-2010-06380

PATIENT
  Sex: Male

DRUGS (3)
  1. ALLOPURINOL (WATSON LABORATORIES) [Suspect]
     Indication: TUMOUR LYSIS SYNDROME
     Dosage: 300 MG, DAILY
     Route: 048
     Dates: start: 20100402, end: 20100419
  2. TREANDA [Suspect]
     Indication: B-CELL LYMPHOMA
     Dosage: 200 MG, 2 DOSES ONLY
     Route: 042
     Dates: start: 20100405, end: 20100406
  3. RITUXIMAB [Suspect]
     Indication: B-CELL LYMPHOMA
     Dosage: 830 MG, SINGLE USE ONLY
     Route: 042
     Dates: start: 20100405, end: 20100405

REACTIONS (8)
  - ATRIAL FIBRILLATION [None]
  - COUGH [None]
  - DYSPNOEA [None]
  - FATIGUE [None]
  - LOCAL SWELLING [None]
  - NASOPHARYNGITIS [None]
  - RASH GENERALISED [None]
  - RHINORRHOEA [None]
